FAERS Safety Report 13455434 (Version 1)
Quarter: 2017Q2

REPORT INFORMATION
  Report Type: Spontaneous
  Country: US (occurrence: US)
  Receive Date: 20170418
  Receipt Date: 20170418
  Transmission Date: 20170830
  Serious: Yes (Disabling)
  Sender: FDA-Public Use
  Company Number: None

PATIENT
  Age: 39 Year
  Sex: Female
  Weight: 54.48 kg

DRUGS (8)
  1. WELLBUTRIN [Concomitant]
     Active Substance: BUPROPION HYDROCHLORIDE
  2. MAGNESIUM [Concomitant]
     Active Substance: MAGNESIUM
  3. SKYLA [Suspect]
     Active Substance: LEVONORGESTREL
  4. ZINC. [Concomitant]
     Active Substance: ZINC
  5. VALIUM [Concomitant]
     Active Substance: DIAZEPAM
  6. VITAMIN D [Concomitant]
     Active Substance: CHOLECALCIFEROL
  7. POTASSIUM [Concomitant]
     Active Substance: POTASSIUM
  8. LAMICTAL [Concomitant]
     Active Substance: LAMOTRIGINE

REACTIONS (7)
  - Irritability [None]
  - Emotional disorder [None]
  - Threat of redundancy [None]
  - Insomnia [None]
  - Bipolar I disorder [None]
  - Anxiety [None]
  - Premenstrual dysphoric disorder [None]

NARRATIVE: CASE EVENT DATE: 20170101
